FAERS Safety Report 9234120 (Version 1)
Quarter: 2013Q2

REPORT INFORMATION
  Report Type: Spontaneous
  Country: US (occurrence: US)
  Receive Date: 20130416
  Receipt Date: 20130416
  Transmission Date: 20140414
  Serious: Yes (Other)
  Sender: FDA-Public Use
  Company Number: US-TEVA-397754USA

PATIENT
  Age: 30 Year
  Sex: Female

DRUGS (1)
  1. NUVIGIL [Suspect]

REACTIONS (1)
  - Rash [Recovered/Resolved]
